FAERS Safety Report 6202829-6 (Version None)
Quarter: 2009Q2

REPORT INFORMATION
  Report Type: 
  Country: None (occurrence: None)
  Receive Date: 20090520
  Receipt Date: 20090511
  Transmission Date: 20091009
  Serious: Yes (Life-Threatening, Hospitalization, Disabling, Other)
  Sender: FDA-Public Use
  Company Number: GXKR2009GB05682

PATIENT
  Age: 57 Year
  Sex: Female
  Weight: 65 kg

DRUGS (8)
  1. CITALOPRAM HYDROBROMIDE [Suspect]
     Indication: DEPRESSION
     Dosage: 20 MG, ORAL
     Route: 048
     Dates: start: 20090202, end: 20090205
  2. METRONIDAZOLE [Suspect]
     Indication: TOOTH DISORDER
     Dosage: 200 MG, TID, ORAL
     Route: 048
     Dates: start: 20090202, end: 20090205
  3. BENDROFLUMETHIAZIDE (BENDROFLUMETHIAZIDE) [Concomitant]
  4. GARLIC (ALLIUM SATIVUM) [Concomitant]
  5. MAGNESIUM (MAGNESIUM) [Concomitant]
  6. MENOPACE (MNERALS NOS, VITAMINS NOS) [Concomitant]
  7. ACETAMINOPHEN [Concomitant]
  8. RAMIPRIL [Concomitant]

REACTIONS (9)
  - CENTRAL PONTINE MYELINOLYSIS [None]
  - CONVULSION [None]
  - DRUG INTERACTION [None]
  - FEELING HOT [None]
  - GAIT DISTURBANCE [None]
  - HYPONATRAEMIA [None]
  - MEMORY IMPAIRMENT [None]
  - THIRST [None]
  - VOMITING [None]
